FAERS Safety Report 4392589-6 (Version None)
Quarter: 2004Q3

REPORT INFORMATION
  Report Type: 
  Country: None (occurrence: None)
  Receive Date: 20040702
  Receipt Date: 20040617
  Transmission Date: 20050211
  Serious: Yes (Other)
  Sender: FDA-Public Use
  Company Number: 23612

PATIENT
  Age: 1 Day

DRUGS (5)
  1. TAMBOCOR (IV) (FLECAINIDE ACETATE) (FLECAINIDE ACETATE) [Suspect]
     Indication: NODAL ARRHYTHMIA
     Dosage: 1.5 MG/DAY  , INTRAVENOUS
     Route: 042
     Dates: start: 20030514, end: 20030514
  2. TAMBOCOR [Suspect]
     Indication: TACHYCARDIA
     Dosage: 10 MG/DAY , ORAL
     Route: 048
     Dates: start: 20030514, end: 20030524
  3. INOVAN (DOAPAMINE HYDROCHLORIDE) [Concomitant]
  4. DOBUTREX [Concomitant]
  5. INDACIN (INDOMETACIN SODIUM) [Concomitant]

REACTIONS (5)
  - ATRIOVENTRICULAR BLOCK [None]
  - ATRIOVENTRICULAR BLOCK COMPLETE [None]
  - NEONATAL DISORDER [None]
  - OEDEMA [None]
  - OLIGURIA [None]
